FAERS Safety Report 11076922 (Version 2)
Quarter: 2015Q2

REPORT INFORMATION
  Report Type: Spontaneous
  Country: US (occurrence: US)
  Receive Date: 20150429
  Receipt Date: 20150526
  Transmission Date: 20150821
  Serious: No
  Sender: FDA-Public Use
  Company Number: US-JNJFOC-20130811937

PATIENT
  Age: 33 Year
  Sex: Male
  Weight: 66.68 kg

DRUGS (1)
  1. IMODIUM [Suspect]
     Active Substance: LOPERAMIDE HYDROCHLORIDE
     Indication: DIARRHOEA
     Dosage: AS RECOMMENDED
     Route: 048

REACTIONS (1)
  - Therapeutic response decreased [Unknown]
